FAERS Safety Report 12763871 (Version 1)
Quarter: 2016Q3

REPORT INFORMATION
  Report Type: Spontaneous
  Country: CN (occurrence: CN)
  Receive Date: 20160920
  Receipt Date: 20160920
  Transmission Date: 20161109
  Serious: Yes (Hospitalization)
  Sender: FDA-Public Use
  Company Number: CN-PFIZER INC-2016432855

PATIENT
  Age: 47 Year
  Sex: Female
  Weight: 56 kg

DRUGS (2)
  1. LIPITOR [Suspect]
     Active Substance: ATORVASTATIN CALCIUM
     Indication: HYPERLIPIDAEMIA
     Dosage: 10 MG, 1X/DAY
     Route: 048
     Dates: start: 20160201, end: 20160511
  2. GLUCOPHAGE [Suspect]
     Active Substance: METFORMIN HYDROCHLORIDE
     Indication: DIABETES MELLITUS
     Dosage: 500 MG, 3X/DAY
     Route: 048
     Dates: start: 20160201, end: 20160516

REACTIONS (10)
  - Decreased appetite [Unknown]
  - Fatigue [Unknown]
  - Dizziness [Unknown]
  - Hepatic enzyme increased [Recovering/Resolving]
  - Pollakiuria [Unknown]
  - Myalgia [Unknown]
  - Condition aggravated [Unknown]
  - Nausea [Unknown]
  - Micturition urgency [Unknown]
  - Vomiting [Unknown]

NARRATIVE: CASE EVENT DATE: 20160509
